FAERS Safety Report 23241375 (Version 1)
Quarter: 2023Q4

REPORT INFORMATION
  Report Type: Report from Study
  Country: BR (occurrence: BR)
  Receive Date: 20231129
  Receipt Date: 20231129
  Transmission Date: 20240110
  Serious: Yes (Other)
  Sender: FDA-Public Use
  Company Number: BR-SUN PHARMACEUTICAL INDUSTRIES LTD-2023R1-421200

PATIENT
  Age: 41 Year
  Sex: Female

DRUGS (2)
  1. ESTRADIOL [Suspect]
     Active Substance: ESTRADIOL
     Indication: Acromegaly
     Dosage: 0.03 MILLIGRAM
     Route: 048
  2. LEVONORGESTREL [Suspect]
     Active Substance: LEVONORGESTREL
     Indication: Acromegaly
     Dosage: 0.15 MILLIGRAM
     Route: 048

REACTIONS (1)
  - Therapy non-responder [Unknown]
